FAERS Safety Report 17973230 (Version 1)
Quarter: 2020Q3

REPORT INFORMATION
  Report Type: Spontaneous
  Country: US (occurrence: US)
  Receive Date: 20200701
  Receipt Date: 20200701
  Transmission Date: 20201103
  Serious: Yes (Hospitalization)
  Sender: FDA-Public Use
  Company Number: None

PATIENT
  Age: 38 Year
  Sex: Male
  Weight: 111.6 kg

DRUGS (10)
  1. DILTIAZEM ER 120MG [Concomitant]
     Active Substance: DILTIAZEM
     Dates: start: 20200527
  2. METOPROLOL ER 50MG [Concomitant]
     Dates: start: 20200527
  3. FLUPHENAZINE 2.5MG [Concomitant]
     Dates: start: 20200605
  4. PANTOPRAZOLE 40MG [Concomitant]
     Active Substance: PANTOPRAZOLE SODIUM
     Dates: start: 20200527
  5. LITHIUM. [Suspect]
     Active Substance: LITHIUM
     Indication: AFFECTIVE DISORDER
     Route: 048
     Dates: start: 20200527, end: 20200605
  6. HYDROXYZINE PAM 50MG [Concomitant]
     Dates: start: 20200527
  7. LORATADINE 10MG [Concomitant]
     Active Substance: LORATADINE
     Dates: start: 20200527
  8. GABAPENTIN 300MG [Concomitant]
     Active Substance: GABAPENTIN
     Dates: start: 20200527
  9. TAMSULOSIN 0.4MG [Concomitant]
     Active Substance: TAMSULOSIN
     Dates: start: 20200527
  10. HALOPERIDOL. [Suspect]
     Active Substance: HALOPERIDOL
     Indication: SCHIZOAFFECTIVE DISORDER
     Route: 048
     Dates: start: 20200527, end: 20200602

REACTIONS (5)
  - General physical health deterioration [None]
  - Nephrolithiasis [None]
  - Dystonia [None]
  - Drug hypersensitivity [None]
  - Pneumonia [None]

NARRATIVE: CASE EVENT DATE: 20200605
